FAERS Safety Report 9686024 (Version 1)
Quarter: 2013Q4

REPORT INFORMATION
  Report Type: Spontaneous
  Country: US (occurrence: US)
  Receive Date: 20131113
  Receipt Date: 20131113
  Transmission Date: 20140711
  Serious: No
  Sender: FDA-Public Use
  Company Number: US-ALLERGAN-1300267US

PATIENT
  Age: 69 Year
  Sex: Female

DRUGS (6)
  1. COMBIGAN[R] [Suspect]
     Indication: INTRAOCULAR PRESSURE INCREASED
     Dosage: 2 UNK, UNK
     Route: 047
     Dates: start: 201212
  2. LUMIGAN [Concomitant]
     Indication: GLAUCOMA
     Dosage: 1 GTT, UNK
     Route: 047
  3. XALATAN                            /01297301/ [Concomitant]
     Indication: GLAUCOMA
     Dosage: 1 GTT, UNK
     Route: 047
  4. NORTRIPTYLINE [Concomitant]
     Indication: MIGRAINE
     Dosage: 75 MG, UNK
     Route: 048
  5. NADOLOL [Concomitant]
     Indication: MIGRAINE
     Dosage: 40 MG, UNK
     Route: 048
  6. SIMVASTATIN [Concomitant]
     Indication: BLOOD CHOLESTEROL
     Dosage: 20 MG, UNK
     Route: 048

REACTIONS (10)
  - Musculoskeletal stiffness [Recovered/Resolved]
  - Joint stiffness [Recovered/Resolved]
  - Joint stiffness [Recovered/Resolved]
  - Joint stiffness [Recovered/Resolved]
  - Musculoskeletal stiffness [Not Recovered/Not Resolved]
  - Musculoskeletal pain [Recovered/Resolved]
  - Arthralgia [Recovered/Resolved]
  - Arthralgia [Recovered/Resolved]
  - Arthralgia [Recovered/Resolved]
  - Pain in extremity [Not Recovered/Not Resolved]
